FAERS Safety Report 8585159-7 (Version None)
Quarter: 2012Q3

REPORT INFORMATION
  Report Type: 
  Country: None (occurrence: None)
  Receive Date: 20120810
  Receipt Date: 20120803
  Transmission Date: 20120928
  Serious: Yes (Other)
  Sender: FDA-Public Use
  Company Number: PHHY2012ES067492

PATIENT
  Age: 77 Year
  Sex: Female

DRUGS (1)
  1. IMATINIB MESYLATE [Suspect]
     Indication: GASTROINTESTINAL STROMAL TUMOUR
     Dosage: 400 MG, QD

REACTIONS (13)
  - OEDEMA [None]
  - AORTIC VALVE INCOMPETENCE [None]
  - VOMITING [None]
  - LEFT VENTRICULAR HYPERTROPHY [None]
  - OSTEOLYSIS [None]
  - NODULE [None]
  - CARDIOMYOPATHY [None]
  - OSTEOSCLEROSIS [None]
  - CARDIOMEGALY [None]
  - CARDIAC FAILURE CONGESTIVE [None]
  - PLEURAL EFFUSION [None]
  - LYMPHADENOPATHY MEDIASTINAL [None]
  - DYSPNOEA [None]
